FAERS Safety Report 23172360 (Version 1)
Quarter: 2023Q4

REPORT INFORMATION
  Report Type: Spontaneous
  Country: CN (occurrence: CN)
  Receive Date: 20231110
  Receipt Date: 20231110
  Transmission Date: 20240109
  Serious: Yes (Hospitalization, Other)
  Sender: FDA-Public Use
  Company Number: CN-SANOFI-01827488

PATIENT
  Sex: Male

DRUGS (2)
  1. TOUJEO [Suspect]
     Active Substance: INSULIN GLARGINE
     Indication: Diabetes mellitus
     Dosage: 18 IU, QD
     Dates: start: 2022
  2. TOUJEO [Suspect]
     Active Substance: INSULIN GLARGINE
     Dosage: 29 IU, QD

REACTIONS (2)
  - Diabetic ketoacidosis [Recovering/Resolving]
  - Blood glucose increased [Recovering/Resolving]
